FAERS Safety Report 20379665 (Version 1)
Quarter: 2022Q1

REPORT INFORMATION
  Report Type: Spontaneous
  Country: US (occurrence: None)
  Receive Date: 20220126
  Receipt Date: 20220126
  Transmission Date: 20220423
  Serious: No
  Sender: FDA-Public Use
  Company Number: None

PATIENT
  Age: 74 Year
  Sex: Female

DRUGS (1)
  1. TADALAFIL [Suspect]
     Active Substance: TADALAFIL
     Dosage: 40 DAILY OCCLUSIVE DRESSING TECHNIQUE?
     Route: 046
     Dates: start: 2016

REACTIONS (1)
  - Dehydration [None]

NARRATIVE: CASE EVENT DATE: 20220101
